FAERS Safety Report 6383102-2 (Version None)
Quarter: 2009Q3

REPORT INFORMATION
  Report Type: 
  Country: None (occurrence: None)
  Receive Date: 20090928
  Receipt Date: 20090914
  Transmission Date: 20100115
  Serious: Yes (Death)
  Sender: FDA-Public Use
  Company Number: OPIR20090051

PATIENT
  Age: 42 Year
  Sex: Male

DRUGS (1)
  1. OPANA [Suspect]
     Indication: DRUG USE FOR UNKNOWN INDICATION

REACTIONS (4)
  - ACCIDENTAL DEATH [None]
  - ARTERIOSCLEROSIS [None]
  - DRUG TOXICITY [None]
  - PULMONARY OEDEMA [None]
